FAERS Safety Report 4367813-6 (Version None)
Quarter: 2004Q2

REPORT INFORMATION
  Report Type: 
  Country: None (occurrence: None)
  Receive Date: 20040526
  Receipt Date: 20031117
  Transmission Date: 20050107
  Serious: Yes (Death)
  Sender: FDA-Public Use
  Company Number: USA031152975

PATIENT
  Age: 12 Year

DRUGS (1)
  1. ZYPREXA [Suspect]
     Dosage: 15 MG/DAY

REACTIONS (1)
  - DIABETIC COMA [None]
